FAERS Safety Report 5556356-X (Version None)
Quarter: 2007Q4

REPORT INFORMATION
  Report Type: 
  Country: None (occurrence: None)
  Receive Date: 20071213
  Receipt Date: 20070914
  Transmission Date: 20080405
  Serious: No
  Sender: FDA-Public Use
  Company Number: US-AMGEN-KDL237399

PATIENT
  Sex: Female
  Weight: 56.3 kg

DRUGS (5)
  1. ENBREL [Suspect]
     Indication: RHEUMATOID ARTHRITIS
     Route: 058
     Dates: start: 20070720
  2. METHOTREXATE [Concomitant]
     Route: 048
     Dates: start: 20070210
  3. LIPITOR [Concomitant]
  4. PREDNISONE [Concomitant]
     Dates: start: 20070201
  5. LEUCOVORIN CALCIUM [Concomitant]

REACTIONS (2)
  - ABDOMINAL PAIN UPPER [None]
  - GASTRITIS [None]
